FAERS Safety Report 15765997 (Version 2)
Quarter: 2019Q4

REPORT INFORMATION
  Report Type: Spontaneous
  Country: US (occurrence: US)
  Receive Date: 20181227
  Receipt Date: 20191028
  Transmission Date: 20200122
  Serious: No
  Sender: FDA-Public Use
  Company Number: US-SA-2018SA393360

PATIENT
  Age: 38 Year
  Sex: Male

DRUGS (2)
  1. DUPIXENT [Suspect]
     Active Substance: DUPILUMAB
     Indication: DERMATITIS ATOPIC
     Dosage: 300 MG, QOW
     Route: 058
     Dates: start: 201808, end: 201906
  2. DUPIXENT [Suspect]
     Active Substance: DUPILUMAB
     Indication: PRURIGO

REACTIONS (6)
  - Blood urine present [Unknown]
  - Swelling of eyelid [Unknown]
  - Injection site pain [Unknown]
  - Pruritus [Unknown]
  - Dry skin [Unknown]
  - Injection site paraesthesia [Unknown]

NARRATIVE: CASE EVENT DATE: 20181208
